FAERS Safety Report 5262198-5 (Version None)
Quarter: 2007Q1

REPORT INFORMATION
  Report Type: 
  Country: None (occurrence: None)
  Receive Date: 20070311
  Receipt Date: 20070228
  Transmission Date: 20070707
  Serious: Yes (Other)
  Sender: FDA-Public Use
  Company Number: 2006UW08759

PATIENT
  Sex: Female
  Weight: 135 kg

DRUGS (13)
  1. SEROQUEL [Suspect]
     Indication: DEPRESSION
     Route: 048
     Dates: start: 19980101, end: 20020101
  2. SEROQUEL [Suspect]
     Indication: BIPOLAR DISORDER
     Route: 048
     Dates: start: 19980101, end: 20020101
  3. SEROQUEL [Suspect]
     Indication: SCHIZOPHRENIA
     Route: 048
     Dates: start: 19980101, end: 20020101
  4. SEROQUEL [Suspect]
     Route: 048
     Dates: start: 20030101
  5. SEROQUEL [Suspect]
     Route: 048
     Dates: start: 20030101
  6. SEROQUEL [Suspect]
     Route: 048
     Dates: start: 20030101
  7. RISPERDAL [Suspect]
     Dates: start: 20000101, end: 20020101
  8. RISPERDAL [Suspect]
     Dates: start: 20040101, end: 20060101
  9. ZYPREXA [Suspect]
     Dates: start: 20000101, end: 20030101
  10. GEODON [Concomitant]
  11. HALDOL [Concomitant]
  12. STELAZINE [Concomitant]
  13. THORAZINE [Concomitant]

REACTIONS (5)
  - BLOOD CHOLESTEROL INCREASED [None]
  - BLOOD TRIGLYCERIDES INCREASED [None]
  - DIABETES MELLITUS [None]
  - OBESITY [None]
  - SCHIZOPHRENIA [None]
